FAERS Safety Report 9716878 (Version 1)
Quarter: 2013Q4

REPORT INFORMATION
  Report Type: Spontaneous
  Country: US (occurrence: US)
  Receive Date: 20131127
  Receipt Date: 20131127
  Transmission Date: 20140711
  Serious: Yes (Other)
  Sender: FDA-Public Use
  Company Number: US-ABBVIE-13P-163-1172923-00

PATIENT
  Age: 51 Year
  Sex: Male
  Weight: 136.2 kg

DRUGS (5)
  1. HUMIRA [Suspect]
     Indication: RHEUMATOID ARTHRITIS
     Dates: start: 201208
  2. HUMIRA [Suspect]
     Indication: CROHN^S DISEASE
  3. PREDNISONE [Concomitant]
     Indication: PRODUCT USED FOR UNKNOWN INDICATION
     Dates: start: 2003
  4. FLAGYL [Concomitant]
     Indication: PRODUCT USED FOR UNKNOWN INDICATION
     Dates: start: 1998
  5. CIPRO [Concomitant]
     Indication: PRODUCT USED FOR UNKNOWN INDICATION
     Dates: start: 2003

REACTIONS (2)
  - Large intestinal obstruction [Not Recovered/Not Resolved]
  - Therapeutic response unexpected [Unknown]
